FAERS Safety Report 24732849 (Version 1)
Quarter: 2024Q4

REPORT INFORMATION
  Report Type: Report from Study
  Country: FR (occurrence: FR)
  Receive Date: 20241213
  Receipt Date: 20241213
  Transmission Date: 20250115
  Serious: Yes (Other)
  Sender: ALNYLAM PHARMACEUTICALS
  Company Number: FR-ALNYLAM PHARMACEUTICALS, INC.-ALN-2024-006979

PATIENT

DRUGS (1)
  1. ONPATTRO [Suspect]
     Active Substance: PATISIRAN SODIUM
     Indication: Amyloidosis
     Dosage: UNK
     Route: 065

REACTIONS (5)
  - Spinal stenosis [Unknown]
  - Spinal compression fracture [Unknown]
  - Bone cyst [Unknown]
  - Mobility decreased [Unknown]
  - Procedural pain [Unknown]
